FAERS Safety Report 10087113 (Version 3)
Quarter: 2014Q2

REPORT INFORMATION
  Report Type: Spontaneous
  Country: US (occurrence: US)
  Receive Date: 20140418
  Receipt Date: 20140630
  Transmission Date: 20141212
  Serious: Yes (Hospitalization, Other)
  Sender: FDA-Public Use
  Company Number: US-GILEAD-2014-0100138

PATIENT
  Sex: Female

DRUGS (4)
  1. LETAIRIS [Suspect]
     Indication: PULMONARY HYPERTENSION
     Dosage: 5 MG, UNK
     Route: 065
     Dates: start: 20121220
  2. LETAIRIS [Suspect]
     Indication: AORTIC STENOSIS
  3. ASA [Concomitant]
     Dosage: 81 MG, UNK
  4. LASIX                              /00032601/ [Concomitant]
     Dosage: 40 MG, UNK

REACTIONS (3)
  - Gallbladder cancer [Unknown]
  - Biopsy liver [Unknown]
  - Liver abscess [Recovered/Resolved]
